FAERS Safety Report 4455648-5 (Version None)
Quarter: 2004Q3

REPORT INFORMATION
  Report Type: 
  Country: None (occurrence: None)
  Receive Date: 20040922
  Receipt Date: 20040903
  Transmission Date: 20050211
  Serious: Yes (Other)
  Sender: FDA-Public Use
  Company Number: PHBS2004BR11865

PATIENT
  Sex: Female

DRUGS (3)
  1. DIOVAN [Suspect]
     Indication: HYPERTENSION
     Dosage: 80 MG/DAY
     Route: 048
     Dates: start: 20040401
  2. PHENYTOIN [Concomitant]
     Indication: INTRACRANIAL ANEURYSM
     Dosage: 3 TABLET/DAY
     Route: 048
  3. RIVOTRIL [Concomitant]
     Dosage: 0.5 MG/DAY
     Route: 048

REACTIONS (2)
  - ANEURYSM [None]
  - BLOOD PRESSURE ABNORMAL [None]
